FAERS Safety Report 15556622 (Version 3)
Quarter: 2018Q4

REPORT INFORMATION
  Report Type: Spontaneous
  Country: JP (occurrence: JP)
  Receive Date: 20181026
  Receipt Date: 20181208
  Transmission Date: 20190205
  Serious: Yes (Death, Other)
  Sender: FDA-Public Use
  Company Number: JP-AMGEN-JPNSP2018151360

PATIENT
  Age: 29 Year
  Sex: Female

DRUGS (19)
  1. G-LASTA [Suspect]
     Active Substance: PEGFILGRASTIM
     Dosage: 3.6 MG, UNK
     Route: 058
  2. G-LASTA [Suspect]
     Active Substance: PEGFILGRASTIM
     Dosage: 3.6 MG, UNK
     Route: 058
     Dates: start: 20171208, end: 20171208
  3. DOCETAXEL. [Concomitant]
     Active Substance: DOCETAXEL
     Indication: BREAST CANCER STAGE II
     Dosage: 127.43 MG, UNK
     Route: 041
     Dates: start: 20171220, end: 20171220
  4. G-LASTA [Suspect]
     Active Substance: PEGFILGRASTIM
     Indication: COLONY STIMULATING FACTOR THERAPY
     Dosage: 3.6 MG, UNK
     Route: 058
     Dates: start: 20171027, end: 20171027
  5. CYCLOPHOSPHAMIDE. [Concomitant]
     Active Substance: CYCLOPHOSPHAMIDE
     Dosage: 1020 MG, UNK
     Route: 041
  6. G-LASTA [Suspect]
     Active Substance: PEGFILGRASTIM
     Dosage: 1.8 MG, UNK
     Route: 058
     Dates: start: 20171222, end: 20171222
  7. CYCLOPHOSPHAMIDE. [Concomitant]
     Active Substance: CYCLOPHOSPHAMIDE
     Indication: BREAST CANCER STAGE II
     Dosage: 1020 MG, UNK
     Route: 041
     Dates: start: 20171025, end: 20171025
  8. CYCLOPHOSPHAMIDE. [Concomitant]
     Active Substance: CYCLOPHOSPHAMIDE
     Dosage: 1020 MG, UNK
     Route: 041
  9. CYCLOPHOSPHAMIDE. [Concomitant]
     Active Substance: CYCLOPHOSPHAMIDE
     Dosage: 1020 MG, UNK
     Route: 041
     Dates: start: 20171206, end: 20171206
  10. EPIRUBICIN [Concomitant]
     Active Substance: EPIRUBICIN
     Indication: BREAST CANCER STAGE II
     Dosage: 153 MG, UNK
     Route: 041
     Dates: start: 20171025, end: 20171025
  11. EPIRUBICIN [Concomitant]
     Active Substance: EPIRUBICIN
     Dosage: 153 MG, UNK
     Route: 041
  12. G-LASTA [Suspect]
     Active Substance: PEGFILGRASTIM
     Dosage: 3.6 MG, UNK
     Route: 058
  13. G-LASTA [Suspect]
     Active Substance: PEGFILGRASTIM
     Dosage: 3.6 MG, UNK
     Route: 058
  14. EPIRUBICIN [Concomitant]
     Active Substance: EPIRUBICIN
     Dosage: 153 MG, UNK
     Route: 041
  15. DOCETAXEL. [Concomitant]
     Active Substance: DOCETAXEL
     Dosage: 127.43 MG, UNK
     Route: 041
  16. G-LASTA [Suspect]
     Active Substance: PEGFILGRASTIM
     Dosage: 3.6 MG, UNK
     Route: 058
     Dates: start: 20180209, end: 20180209
  17. EPIRUBICIN [Concomitant]
     Active Substance: EPIRUBICIN
     Dosage: 153 MG, UNK
     Route: 041
     Dates: start: 20171206, end: 20171206
  18. DOCETAXEL. [Concomitant]
     Active Substance: DOCETAXEL
     Dosage: 127.43 MG, UNK
     Route: 041
  19. DOCETAXEL. [Concomitant]
     Active Substance: DOCETAXEL
     Dosage: 127.43 MG, UNK
     Route: 041
     Dates: start: 20180207, end: 20180207

REACTIONS (4)
  - Disease progression [Fatal]
  - Neutrophilia [Unknown]
  - Chemotherapy [Unknown]
  - Malaise [Unknown]

NARRATIVE: CASE EVENT DATE: 20171222
